FAERS Safety Report 13532712 (Version 10)
Quarter: 2017Q3

REPORT INFORMATION
  Report Type: Spontaneous
  Country: US (occurrence: US)
  Receive Date: 20170510
  Receipt Date: 20170926
  Transmission Date: 20171127
  Serious: Yes (Hospitalization, Other)
  Sender: FDA-Public Use
  Company Number: US-CLOVIS ONCOLOGY-CLO-2017-000355

PATIENT
  Age: 68 Year
  Sex: Female

DRUGS (3)
  1. RUBRACA [Suspect]
     Active Substance: RUCAPARIB CAMSYLATE
     Indication: OVARIAN CANCER
     Dosage: 600 MG, BID
     Route: 048
     Dates: start: 20170416
  2. RUBRACA [Suspect]
     Active Substance: RUCAPARIB CAMSYLATE
     Dosage: 600 MG, BID
     Route: 048
     Dates: start: 20170507
  3. RUBRACA [Suspect]
     Active Substance: RUCAPARIB CAMSYLATE
     Dosage: 600 MG, BID
     Route: 048
     Dates: start: 20170526, end: 20170828

REACTIONS (21)
  - Carbohydrate antigen 125 increased [Unknown]
  - Vomiting [Unknown]
  - Dysgeusia [Unknown]
  - White blood cell count decreased [Unknown]
  - Glomerular filtration rate decreased [Recovered/Resolved]
  - Pruritus [Recovered/Resolved]
  - Blood creatinine increased [Recovered/Resolved]
  - Constipation [Unknown]
  - Aspartate aminotransferase increased [Recovered/Resolved]
  - Drug ineffective [Unknown]
  - Protein total decreased [Recovered/Resolved]
  - Nausea [Unknown]
  - Decreased appetite [Unknown]
  - Faeces discoloured [Unknown]
  - Serum ferritin increased [Recovered/Resolved]
  - Haemoglobin decreased [Unknown]
  - Intestinal obstruction [Unknown]
  - Headache [Unknown]
  - Blood alkaline phosphatase increased [Recovered/Resolved]
  - Blood count abnormal [Not Recovered/Not Resolved]
  - Fatigue [Unknown]

NARRATIVE: CASE EVENT DATE: 2017
